FAERS Safety Report 23890108 (Version 2)
Quarter: 2024Q4

REPORT INFORMATION
  Report Type: Spontaneous
  Country: US (occurrence: US)
  Receive Date: 20240523
  Receipt Date: 20241221
  Transmission Date: 20250115
  Serious: No
  Sender: SANOFI AVENTIS
  Company Number: US-SA-SAC20240521001123

PATIENT
  Age: 9 Year
  Sex: Male
  Weight: 26.8 kg

DRUGS (1)
  1. DUPIXENT [Suspect]
     Active Substance: DUPILUMAB
     Indication: Dermatitis atopic
     Dosage: 300 MG, Q4W
     Route: 058

REACTIONS (3)
  - Adverse drug reaction [Unknown]
  - Injection site pain [Not Recovered/Not Resolved]
  - Intentional dose omission [Unknown]
